FAERS Safety Report 8384985-7 (Version None)
Quarter: 2012Q2

REPORT INFORMATION
  Report Type: 
  Country: None (occurrence: None)
  Receive Date: 20120524
  Receipt Date: 20120517
  Transmission Date: 20120825
  Serious: Yes (Hospitalization, Other)
  Sender: FDA-Public Use
  Company Number: DK-ALLERGAN-1207029US

PATIENT
  Age: 42 Year
  Sex: Female

DRUGS (1)
  1. BOTOX [Suspect]
     Indication: MIGRAINE
     Dosage: 155 UNITS, SINGLE
     Route: 030
     Dates: start: 20120410, end: 20120410

REACTIONS (7)
  - WEIGHT INCREASED [None]
  - SYNCOPE [None]
  - INFLUENZA LIKE ILLNESS [None]
  - RHINORRHOEA [None]
  - GENERALISED OEDEMA [None]
  - FATIGUE [None]
  - OEDEMA [None]
